FAERS Safety Report 8859408 (Version 1)
Quarter: 2012Q4

REPORT INFORMATION
  Report Type: Spontaneous
  Country: GB (occurrence: None)
  Receive Date: 20121022
  Receipt Date: 20121022
  Transmission Date: 20130627
  Serious: No
  Sender: FDA-Public Use
  Company Number: THQ2012A09304

PATIENT
  Age: 60 Year
  Sex: Female

DRUGS (4)
  1. LANSOPRAZOLE (LANSOPRAZOLE) [Suspect]
     Indication: HIATUS HERNIA
     Dates: start: 20120905, end: 20120925
  2. CO-CODAMOL (CODEINE PHOSPHATE, PARACETAMOL) [Concomitant]
  3. ASPIRIN ()ACETYLSALICYLIC ACID) [Concomitant]
  4. PRAVASTATIN [Concomitant]

REACTIONS (8)
  - Visual impairment [None]
  - Diarrhoea [None]
  - Nausea [None]
  - Back pain [None]
  - Dyspnoea [None]
  - Feeling abnormal [None]
  - Condition aggravated [None]
  - Drug ineffective [None]
